FAERS Safety Report 17844577 (Version 1)
Quarter: 2020Q2

REPORT INFORMATION
  Report Type: Report from Study
  Country: US (occurrence: US)
  Receive Date: 20200601
  Receipt Date: 20200601
  Transmission Date: 20200714
  Serious: Yes (Other)
  Sender: FDA-Public Use
  Company Number: US-EMD SERONO-9164816

PATIENT
  Age: 48 Year
  Sex: Female

DRUGS (2)
  1. TYLENOL [Concomitant]
     Active Substance: ACETAMINOPHEN
     Indication: PRODUCT USED FOR UNKNOWN INDICATION
  2. REBIF [Suspect]
     Active Substance: INTERFERON BETA-1A
     Indication: PRODUCT USED FOR UNKNOWN INDICATION
     Dosage: MANUAL
     Route: 058
     Dates: start: 20050407

REACTIONS (5)
  - Injection site pain [Unknown]
  - Intra-abdominal haematoma [Unknown]
  - Injection site mass [Unknown]
  - Ecchymosis [Unknown]
  - Injection site induration [Unknown]

NARRATIVE: CASE EVENT DATE: 20200518
